FAERS Safety Report 10032961 (Version 1)
Quarter: 2014Q1

REPORT INFORMATION
  Report Type: Report from Study
  Country: CN (occurrence: CN)
  Receive Date: 20140324
  Receipt Date: 20140324
  Transmission Date: 20141002
  Serious: Yes (Other)
  Sender: FDA-Public Use
  Company Number: CN-BRACCO-000403

PATIENT
  Sex: 0

DRUGS (2)
  1. IOPAMIDOL [Suspect]
     Indication: PERCUTANEOUS CORONARY INTERVENTION
     Route: 042
     Dates: start: 2010, end: 2010
  2. N-ACETYLCYSTEINE [Concomitant]
     Dosage: 1 HOUR BEFORE PROCEDURE
     Route: 048
     Dates: start: 2010, end: 2010

REACTIONS (1)
  - Nephropathy toxic [Unknown]
